FAERS Safety Report 6874114-0 (Version None)
Quarter: 2010Q3

REPORT INFORMATION
  Report Type: 
  Country: None (occurrence: None)
  Receive Date: 20100723
  Receipt Date: 20090416
  Transmission Date: 20110219
  Serious: No
  Sender: FDA-Public Use
  Company Number: US-PFIZER INC-2009202462

PATIENT
  Age: 63 Year
  Sex: Female

DRUGS (1)
  1. CHANTIX [Suspect]

REACTIONS (1)
  - DRUG INEFFECTIVE [None]
